FAERS Safety Report 9999086 (Version 1)
Quarter: 2014Q1

REPORT INFORMATION
  Report Type: Spontaneous
  Country: US (occurrence: None)
  Receive Date: 20140311
  Receipt Date: 20140311
  Transmission Date: 20141002
  Serious: Yes (Other)
  Sender: FDA-Public Use
  Company Number: None

PATIENT
  Age: 5 Month
  Sex: Male
  Weight: 8.62 kg

DRUGS (1)
  1. HYLANDS TEETHING TABLETS, HYLANDS, INC . [Suspect]
     Indication: TEETHING
     Dosage: TAKEN BY MOUTH
     Dates: start: 20140307, end: 20140308

REACTIONS (2)
  - Vomiting projectile [None]
  - Malaise [None]
